FAERS Safety Report 23063074 (Version 1)
Quarter: 2023Q4

REPORT INFORMATION
  Report Type: Report from Study
  Country: US (occurrence: US)
  Receive Date: 20231013
  Receipt Date: 20231013
  Transmission Date: 20240110
  Serious: Yes (Other)
  Sender: FDA-Public Use
  Company Number: US-ABBVIE-5443892

PATIENT
  Sex: Female

DRUGS (1)
  1. HUMIRA [Suspect]
     Active Substance: ADALIMUMAB
     Indication: Hidradenitis
     Dosage: CITRATE FREE; FORM STRENGTH: 40MG
     Route: 058
     Dates: start: 201911

REACTIONS (2)
  - Procedural pain [Not Recovered/Not Resolved]
  - Scar pain [Not Recovered/Not Resolved]
